FAERS Safety Report 17071746 (Version 1)
Quarter: 2019Q4

REPORT INFORMATION
  Report Type: Spontaneous
  Country: FR (occurrence: FR)
  Receive Date: 20191125
  Receipt Date: 20191125
  Transmission Date: 20200122
  Serious: Yes (Death, Other)
  Sender: FDA-Public Use
  Company Number: FR-FRESENIUS KABI-FK201912978

PATIENT
  Age: 86 Year
  Sex: Female

DRUGS (3)
  1. AMIODARONE [Concomitant]
     Active Substance: AMIODARONE
     Indication: VENTRICULAR EXTRASYSTOLES
  2. LEVOTHYROXINE SODIUM FOR INJECTION (MANUFACTURER UNKNOWN) [Suspect]
     Active Substance: LEVOTHYROXINE SODIUM
     Indication: MYXOEDEMA COMA
     Route: 042
  3. HYDROCORTISONE. [Suspect]
     Active Substance: HYDROCORTISONE
     Indication: MYXOEDEMA COMA
     Dosage: UNKNOWN
     Route: 065

REACTIONS (3)
  - Cardiac arrest [Fatal]
  - Drug ineffective [Fatal]
  - Hypotension [Unknown]
